FAERS Safety Report 17611119 (Version 1)
Quarter: 2020Q2

REPORT INFORMATION
  Report Type: Spontaneous
  Country: US (occurrence: US)
  Receive Date: 20200401
  Receipt Date: 20200401
  Transmission Date: 20200713
  Serious: Yes (Other)
  Sender: FDA-Public Use
  Company Number: US-AMGEN-USASP2020048976

PATIENT

DRUGS (2)
  1. BEVACIZUMAB. [Suspect]
     Active Substance: BEVACIZUMAB
     Indication: GLIOBLASTOMA
     Dosage: UNK UNK, CYCLICAL
     Route: 065
  2. TVB 2640 [Suspect]
     Active Substance: TVB-2640
     Indication: GLIOBLASTOMA
     Dosage: UNK UNK, CYCLICAL
     Route: 065

REACTIONS (7)
  - Optic neuritis [Unknown]
  - Deep vein thrombosis [Unknown]
  - Hypertension [Unknown]
  - Off label use [Unknown]
  - Wound infection [Unknown]
  - Stomatitis [Unknown]
  - Palmar-plantar erythrodysaesthesia syndrome [Unknown]
